FAERS Safety Report 13859470 (Version 1)
Quarter: 2017Q3

REPORT INFORMATION
  Report Type: Spontaneous
  Country: US (occurrence: US)
  Receive Date: 20170811
  Receipt Date: 20170811
  Transmission Date: 20171127
  Serious: Yes (Other)
  Sender: FDA-Public Use
  Company Number: US-PFIZER INC-2017341134

PATIENT
  Age: 67 Year
  Sex: Female
  Weight: 90.25 kg

DRUGS (9)
  1. IBRANCE [Suspect]
     Active Substance: PALBOCICLIB
     Dosage: 125 MG, CYCLIC (DAILY X 21 DAY^S- 7 DAY^S OFF)
     Route: 048
     Dates: start: 20170714
  2. LETROZOLE. [Suspect]
     Active Substance: LETROZOLE
     Indication: BREAST CANCER
     Dosage: UNK
     Dates: start: 20150516
  3. XGEVA [Concomitant]
     Active Substance: DENOSUMAB
     Dosage: Q 3 MONTHS
     Dates: start: 20170427
  4. LISINOPRIL. [Concomitant]
     Active Substance: LISINOPRIL
     Dosage: 10 MG, DAILY (Q DAY)
     Route: 048
     Dates: start: 20150430
  5. VITAMIN D [Concomitant]
     Active Substance: CHOLECALCIFEROL
     Dosage: UNK
  6. LETROZOLE. [Suspect]
     Active Substance: LETROZOLE
     Dosage: 2.5 MG, ONCE DAILY
     Route: 048
     Dates: start: 20170318
  7. CYMBALTA [Concomitant]
     Active Substance: DULOXETINE HYDROCHLORIDE
     Dosage: 30 MG, DAILY (1 Q DAY)
     Route: 048
     Dates: start: 20170727
  8. IBRANCE [Suspect]
     Active Substance: PALBOCICLIB
     Indication: BREAST CANCER METASTATIC
     Dosage: 125 MG, CYCLIC (DAILY FOR 21 DAYS)
     Route: 048
     Dates: start: 20150629
  9. XGEVA [Concomitant]
     Active Substance: DENOSUMAB
     Indication: METASTATIC NEOPLASM
     Dosage: UNK

REACTIONS (18)
  - Neutropenia [Unknown]
  - Toothache [Unknown]
  - Endometrial thickening [Unknown]
  - Neoplasm progression [Unknown]
  - Arthralgia [Unknown]
  - Adjustment disorder with depressed mood [Unknown]
  - Endometrial disorder [Unknown]
  - Constipation [Unknown]
  - Thyroid mass [Unknown]
  - Breast tenderness [Unknown]
  - Pain [Unknown]
  - Anxiety [Unknown]
  - Condition aggravated [Unknown]
  - Breast pain [Unknown]
  - Macrocytosis [Unknown]
  - Endometrial atrophy [Unknown]
  - Tendon rupture [Unknown]
  - Influenza [Unknown]

NARRATIVE: CASE EVENT DATE: 20151202
